FAERS Safety Report 6398144-0 (Version None)
Quarter: 2009Q4

REPORT INFORMATION
  Report Type: 
  Country: None (occurrence: None)
  Receive Date: 20091013
  Receipt Date: 20091007
  Transmission Date: 20100525
  Serious: Yes (Hospitalization, Other)
  Sender: FDA-Public Use
  Company Number: JP-BRISTOL-MYERS SQUIBB COMPANY-14491286

PATIENT
  Age: 49 Year
  Sex: Male

DRUGS (5)
  1. BARACLUDE [Suspect]
     Indication: HEPATITIS B
     Route: 048
     Dates: start: 20070111, end: 20080131
  2. URSO 250 [Concomitant]
     Indication: HEPATITIS B
     Route: 048
     Dates: start: 20000101
  3. LIVACT [Concomitant]
     Route: 048
     Dates: start: 20000101
  4. LASIX [Concomitant]
     Route: 048
     Dates: start: 20000101
  5. ALDACTONE [Concomitant]
     Route: 048
     Dates: start: 20000101

REACTIONS (1)
  - HEPATIC NEOPLASM MALIGNANT RECURRENT [None]
